FAERS Safety Report 13948119 (Version 1)
Quarter: 2017Q3

REPORT INFORMATION
  Report Type: Spontaneous
  Country: US (occurrence: US)
  Receive Date: 20170907
  Receipt Date: 20170907
  Transmission Date: 20171128
  Serious: No
  Sender: FDA-Public Use
  Company Number: None

PATIENT
  Age: 66 Year
  Sex: Female

DRUGS (10)
  1. APAP [Concomitant]
     Active Substance: ACETAMINOPHEN
  2. IBANDRONATE [Suspect]
     Active Substance: IBANDRONATE SODIUM
     Indication: OSTEOPOROSIS
     Dosage: ?          QUANTITY:1 TABLET(S);OTHER FREQUENCY:MONTHLY;?
     Route: 048
  3. VITAMIN D [Concomitant]
     Active Substance: CHOLECALCIFEROL
  4. OXYBUTYNIN [Concomitant]
     Active Substance: OXYBUTYNIN
  5. VITAMIN C [Concomitant]
     Active Substance: ASCORBIC ACID
  6. GLUCOSAMINE [Concomitant]
     Active Substance: GLUCOSAMINE
  7. MVI [Concomitant]
     Active Substance: VITAMINS
  8. FISH OIL [Concomitant]
     Active Substance: FISH OIL
  9. CALCIUM CARBONATE. [Concomitant]
     Active Substance: CALCIUM CARBONATE
  10. LEVOTHYROXINE. [Concomitant]
     Active Substance: LEVOTHYROXINE

REACTIONS (5)
  - Chest pain [None]
  - Neck pain [None]
  - Loss of personal independence in daily activities [None]
  - Headache [None]
  - Back pain [None]

NARRATIVE: CASE EVENT DATE: 20170905
